FAERS Safety Report 7329221-5 (Version None)
Quarter: 2011Q1

REPORT INFORMATION
  Report Type: 
  Country: None (occurrence: None)
  Receive Date: 20110303
  Receipt Date: 20110301
  Transmission Date: 20110831
  Serious: Yes (Congenital Anomaly)
  Sender: FDA-Public Use
  Company Number: A0910745A

PATIENT

DRUGS (2)
  1. COMBIVIR [Suspect]
     Indication: HIV INFECTION
     Dosage: 900MG PER DAY
     Route: 064
     Dates: start: 20100830
  2. KALETRA [Suspect]
     Indication: HIV INFECTION
     Dosage: 1000MG PER DAY
     Route: 064
     Dates: start: 20100830

REACTIONS (2)
  - DRUG EXPOSURE DURING PREGNANCY [None]
  - DANDY-WALKER SYNDROME [None]
